FAERS Safety Report 6259675-7 (Version None)
Quarter: 2009Q3

REPORT INFORMATION
  Report Type: 
  Country: None (occurrence: None)
  Receive Date: 20090706
  Receipt Date: 20090706
  Transmission Date: 20100115
  Serious: Yes (Hospitalization)
  Sender: FDA-Public Use
  Company Number: None

PATIENT
  Age: 54 Year
  Sex: Male
  Weight: 94.2 kg

DRUGS (2)
  1. ANGIOMAX [Suspect]
     Indication: PERCUTANEOUS CORONARY INTERVENTION
     Dosage: 0.75MG/KG X1 IV BOLUS
     Route: 040
     Dates: start: 20090623, end: 20090623
  2. ANGIOMAX [Suspect]
     Indication: ACUTE MYOCARDIAL INFARCTION
     Dosage: 1.75MG/KG/HR X1 IV DRIP
     Route: 041

REACTIONS (2)
  - DEEP VEIN THROMBOSIS [None]
  - HAEMATURIA [None]
